FAERS Safety Report 5241579-X (Version None)
Quarter: 2007Q1

REPORT INFORMATION
  Report Type: 
  Country: None (occurrence: None)
  Receive Date: 20070212
  Receipt Date: 20070212
  Transmission Date: 20070707
  Serious: No
  Sender: FDA-Public Use
  Company Number: None

PATIENT
  Age: 83 Year
  Sex: Male
  Weight: 61.3263 kg

DRUGS (2)
  1. ASPIRIN [Suspect]
     Indication: ISCHAEMIC HEART DISEASE PROPHYLAXIS
     Dosage: 81 MG QD PO
     Route: 048
     Dates: start: 20040618
  2. ALENDRONATE SODIUM [Concomitant]

REACTIONS (1)
  - RECTAL HAEMORRHAGE [None]
